FAERS Safety Report 9298008 (Version 1)
Quarter: 2013Q2

REPORT INFORMATION
  Report Type: Spontaneous
  Country: BR (occurrence: BR)
  Receive Date: 20130520
  Receipt Date: 20130520
  Transmission Date: 20140414
  Serious: Yes (Other)
  Sender: FDA-Public Use
  Company Number: BR-SANOFI-AVENTIS-2013SA048082

PATIENT
  Age: 36 Year
  Sex: Female
  Weight: 80 kg

DRUGS (6)
  1. CLEXANE [Suspect]
     Indication: THROMBOSIS
     Dosage: STRENGTH- 40 MG?ROUTE- ON BELLY
     Dates: start: 2013
  2. CLEXANE [Suspect]
     Indication: THROMBOSIS
     Dosage: ROUTE- ON BELLY
  3. DACTIL OB [Suspect]
     Indication: PROPHYLAXIS OF ABORTION
     Route: 048
     Dates: start: 2013
  4. DACTIL OB [Suspect]
     Indication: PROPHYLAXIS
     Route: 048
     Dates: start: 2013
  5. UTROGESTAN [Concomitant]
     Indication: PROPHYLAXIS OF ABORTION
     Route: 048
     Dates: start: 2013
  6. ENOXAPARIN SODIUM [Concomitant]
     Route: 065
     Dates: start: 2013

REACTIONS (2)
  - Premature separation of placenta [Recovered/Resolved]
  - Exposure during pregnancy [Unknown]
